FAERS Safety Report 6473852-1 (Version None)
Quarter: 2009Q4

REPORT INFORMATION
  Report Type: 
  Country: None (occurrence: None)
  Receive Date: 20091204
  Receipt Date: 20091130
  Transmission Date: 20100525
  Serious: Yes (Death)
  Sender: FDA-Public Use
  Company Number: TW-ROCHE-671652

PATIENT
  Age: 4 Year
  Sex: Female

DRUGS (2)
  1. TAMIFLU [Suspect]
     Indication: H1N1 INFLUENZA
     Route: 048
     Dates: start: 20091110, end: 20091101
  2. RELENZA [Suspect]
     Indication: INFLUENZA
     Route: 055
     Dates: start: 20091101

REACTIONS (1)
  - INFLUENZA [None]
